FAERS Safety Report 16045516 (Version 1)
Quarter: 2019Q1

REPORT INFORMATION
  Report Type: Spontaneous
  Country: US (occurrence: US)
  Receive Date: 20190307
  Receipt Date: 20190307
  Transmission Date: 20190418
  Serious: No
  Sender: FDA-Public Use
  Company Number: US-AUROBINDO-AUR-APL-2018-028612

PATIENT
  Age: 17 Year
  Sex: Male

DRUGS (1)
  1. LEVETIRACETAM ORAL SOLUTION [Suspect]
     Active Substance: LEVETIRACETAM
     Indication: EPILEPSY
     Dosage: SUPPOSED TO TAKE 1000 MG ORALLY 2 TIMES DAILY
     Route: 048
     Dates: start: 201802

REACTIONS (2)
  - Somnolence [Unknown]
  - Overdose [Unknown]

NARRATIVE: CASE EVENT DATE: 20180523
